FAERS Safety Report 15088496 (Version 2)
Quarter: 2018Q3

REPORT INFORMATION
  Report Type: Spontaneous
  Country: IT (occurrence: IT)
  Receive Date: 20180629
  Receipt Date: 20180711
  Transmission Date: 20181010
  Serious: Yes (Other)
  Sender: FDA-Public Use
  Company Number: IT-ROCHE-2146425

PATIENT
  Age: 72 Year
  Sex: Male

DRUGS (8)
  1. LUCENTIS [Suspect]
     Active Substance: RANIBIZUMAB
     Dosage: 7 INJECTIONS
     Route: 042
     Dates: start: 20151015
  2. LUCENTIS [Suspect]
     Active Substance: RANIBIZUMAB
     Dosage: 11 INJECTIONS
     Route: 042
     Dates: start: 201706
  3. LUCENTIS [Suspect]
     Active Substance: RANIBIZUMAB
     Indication: NEOVASCULAR AGE-RELATED MACULAR DEGENERATION
     Dosage: 0.5 MG, UNK
     Route: 031
  4. LUCENTIS [Suspect]
     Active Substance: RANIBIZUMAB
     Dosage: 9 INJECTIONS
     Route: 042
     Dates: start: 20160226
  5. LUCENTIS [Suspect]
     Active Substance: RANIBIZUMAB
     Dosage: 14 INJECTIONS
     Route: 042
     Dates: start: 201702
  6. LUCENTIS [Suspect]
     Active Substance: RANIBIZUMAB
     Dosage: 13 INJECTIONS
     Route: 042
     Dates: start: 201712
  7. LUCENTIS [Suspect]
     Active Substance: RANIBIZUMAB
     Dosage: 10 INJECTIONS
     Route: 042
     Dates: start: 201703
  8. LUCENTIS [Suspect]
     Active Substance: RANIBIZUMAB
     Dosage: 12 INJECTIONS
     Route: 042
     Dates: start: 201710

REACTIONS (5)
  - Parkinson^s disease [Unknown]
  - Gait disturbance [Recovering/Resolving]
  - Fatigue [Unknown]
  - Tremor [Recovering/Resolving]
  - Bradykinesia [Unknown]

NARRATIVE: CASE EVENT DATE: 201602
